FAERS Safety Report 7271168 (Version 2)
Quarter: 2013Q1

REPORT INFORMATION
  Report Type: Spontaneous
  Country: US (occurrence: US)
  Receive Date: 20100204
  Receipt Date: 20130304
  Transmission Date: 20140127
  Serious: Yes (Other)
  Sender: FDA-Public Use
  Company Number: US-RB-010424-09

PATIENT
  Age: 35 Year
  Sex: Female

DRUGS (4)
  1. SUBOXONE TABLET [Suspect]
     Indication: DRUG DEPENDENCE
     Route: 060
     Dates: start: 20071027, end: 20090209
  2. SUBOXONE TABLET [Suspect]
     Route: 060
     Dates: start: 20090320
  3. SUBUTEX [Suspect]
     Indication: DRUG DEPENDENCE
     Route: 060
     Dates: start: 20090225, end: 20090319
  4. SUBUTEX [Suspect]
     Indication: PREGNANCY
     Route: 060
     Dates: start: 20090225, end: 20090319

REACTIONS (3)
  - Exposure during pregnancy [Recovered/Resolved]
  - Foetal chromosome abnormality [Recovered/Resolved]
  - Selective abortion [Recovered/Resolved]
